FAERS Safety Report 7237142-1 (Version None)
Quarter: 2010Q4

REPORT INFORMATION
  Report Type: 
  Country: None (occurrence: None)
  Receive Date: 20101130
  Receipt Date: 20090921
  Transmission Date: 20110411
  Serious: Yes (Hospitalization)
  Sender: FDA-Public Use
  Company Number: 2009-195833-NL

PATIENT
  Age: 14 Year
  Sex: Female
  Weight: 77.1115 kg

DRUGS (6)
  1. NUVARING [Suspect]
     Indication: CONTRACEPTION
     Dosage: 1 DF;QM;VAG
     Route: 067
     Dates: start: 20070909, end: 20071028
  2. NUVARING [Suspect]
     Indication: MENSTRUATION IRREGULAR
     Dosage: 1 DF;QM;VAG
     Route: 067
     Dates: start: 20070909, end: 20071028
  3. XOPENEX [Concomitant]
  4. MIDOL EXTENDED RELIEF CAPLETS [Concomitant]
  5. TYLENOL-500 [Concomitant]
  6. INFLUENZA VACCINE [Concomitant]

REACTIONS (4)
  - BRONCHITIS [None]
  - INTRACRANIAL VENOUS SINUS THROMBOSIS [None]
  - MIGRAINE [None]
  - VIRAL INFECTION [None]
